FAERS Safety Report 5903674-9 (Version None)
Quarter: 2008Q3

REPORT INFORMATION
  Report Type: 
  Country: None (occurrence: None)
  Receive Date: 20080930
  Receipt Date: 20080918
  Transmission Date: 20090109
  Serious: Yes (Other)
  Sender: FDA-Public Use
  Company Number: JP-PFIZER INC-2008080105

PATIENT
  Age: 62 Year
  Sex: Male

DRUGS (2)
  1. CHANTIX [Suspect]
     Route: 048
     Dates: start: 20080801
  2. SERUMLIPIDREDUCING AGENTS [Concomitant]
     Indication: HYPERLIPIDAEMIA

REACTIONS (1)
  - RHABDOMYOLYSIS [None]
